FAERS Safety Report 8281920-7 (Version None)
Quarter: 2012Q2

REPORT INFORMATION
  Report Type: 
  Country: None (occurrence: None)
  Receive Date: 20120413
  Receipt Date: 20120406
  Transmission Date: 20120825
  Serious: Yes (Hospitalization)
  Sender: FDA-Public Use
  Company Number: FR-UCBSA-055018

PATIENT
  Age: 60 Year
  Sex: Male

DRUGS (5)
  1. ABILIFY [Suspect]
     Route: 048
     Dates: start: 20111115, end: 20120220
  2. OXAZEPAM [Concomitant]
     Dosage: 5 MG
  3. KEPPRA [Suspect]
     Route: 048
     Dates: start: 20111108, end: 20120227
  4. EFFEXOR [Suspect]
     Route: 048
     Dates: start: 20120221, end: 20120227
  5. IMOVAN [Concomitant]
     Dosage: 3.75 MG DAILY DOSE
     Route: 048
     Dates: start: 20120224, end: 20120227

REACTIONS (5)
  - COAGULATION FACTOR V LEVEL INCREASED [None]
  - CONFUSIONAL STATE [None]
  - CYTOLYTIC HEPATITIS [None]
  - HEPATIC STEATOSIS [None]
  - SERUM FERRITIN INCREASED [None]
